FAERS Safety Report 8983709 (Version 8)
Quarter: 2014Q1

REPORT INFORMATION
  Report Type: Report from Study
  Country: US (occurrence: US)
  Receive Date: 20121224
  Receipt Date: 20140114
  Transmission Date: 20141002
  Serious: Yes (Life-Threatening, Other)
  Sender: FDA-Public Use
  Company Number: US-NOVOPROD-367593

PATIENT
  Age: 84 Year
  Sex: Male
  Weight: 71.11 kg

DRUGS (2)
  1. PLACEBO RUN IN [Suspect]
     Indication: TYPE 2 DIABETES MELLITUS
     Dosage: 1.2 MG, QD
     Route: 058
     Dates: start: 20120305
  2. VICTOZA [Suspect]
     Indication: TYPE 2 DIABETES MELLITUS

REACTIONS (2)
  - Dizziness [Recovered/Resolved with Sequelae]
  - Asthenia [Recovered/Resolved]
